FAERS Safety Report 9244301 (Version 1)
Quarter: 2013Q1

REPORT INFORMATION
  Report Type: Spontaneous
  Country: US (occurrence: None)
  Receive Date: 20121123
  Receipt Date: 20121123
  Transmission Date: 20140127
  Serious: No
  Sender: FDA-Public Use
  Company Number: 359270

PATIENT
  Sex: Female

DRUGS (1)
  1. VICTOZA (LIRAGLUTIDE) SOLUTION FOR INJECTION [Suspect]
     Indication: DIABETES MELLITUS
     Dosage: 0.6MG/ML, QD, SUBCUTANEOUS
     Route: 058
     Dates: start: 201109

REACTIONS (1)
  - Nausea [None]
